FAERS Safety Report 4320403-3 (Version None)
Quarter: 2004Q1

REPORT INFORMATION
  Report Type: 
  Country: None (occurrence: None)
  Receive Date: 20040322
  Receipt Date: 20031119
  Transmission Date: 20041129
  Serious: Yes (Hospitalization, Other)
  Sender: FDA-Public Use
  Company Number: 200320012US

PATIENT
  Sex: Male

DRUGS (1)
  1. ARAVA [Suspect]
     Indication: RHEUMATOID ARTHRITIS
     Dosage: DOSE: 100 X 1 DOSE
     Route: 048
     Dates: start: 20030109, end: 20030112

REACTIONS (4)
  - DIARRHOEA [None]
  - PNEUMONIA [None]
  - PROSTATE CANCER [None]
  - PULMONARY FIBROSIS [None]
